FAERS Safety Report 24082573 (Version 1)
Quarter: 2024Q3

REPORT INFORMATION
  Report Type: Spontaneous
  Country: IR (occurrence: IR)
  Receive Date: 20240712
  Receipt Date: 20240712
  Transmission Date: 20241017
  Serious: Yes (Hospitalization)
  Sender: NOVITIUM PHARMA
  Company Number: IR-NOVITIUMPHARMA-2024IRNVP01235

PATIENT
  Sex: Female

DRUGS (1)
  1. ACYCLOVIR [Suspect]
     Active Substance: ACYCLOVIR
     Indication: Herpes simplex
     Dosage: DILUTING IN SODIUM CHLORIDE (NORMAL SALINE)
     Route: 042

REACTIONS (1)
  - Administration site extravasation [Recovered/Resolved]
